FAERS Safety Report 15577892 (Version 2)
Quarter: 2019Q2

REPORT INFORMATION
  Report Type: Spontaneous
  Country: US (occurrence: US)
  Receive Date: 20181102
  Receipt Date: 20190612
  Transmission Date: 20190711
  Serious: No
  Sender: FDA-Public Use
  Company Number: US-PFIZER INC-2018437702

PATIENT
  Age: 69 Year
  Sex: Male
  Weight: 88.45 kg

DRUGS (2)
  1. CELONTIN [Suspect]
     Active Substance: METHSUXIMIDE
     Indication: SEIZURE
     Dosage: 300 MG, 2X/DAY[ONE IN THE MORNING AND ONE AT NIGHT ]
     Route: 048
  2. CELONTIN [Suspect]
     Active Substance: METHSUXIMIDE
     Dosage: 600 MG, 1X/DAY[TWO AT NIGHT ]
     Route: 048

REACTIONS (7)
  - Poor quality product administered [Unknown]
  - Respiratory disorder [Unknown]
  - Anxiety [Unknown]
  - Stress [Unknown]
  - Emotional disorder [Unknown]
  - Product physical issue [Unknown]
  - Somnolence [Unknown]

NARRATIVE: CASE EVENT DATE: 20180925
